FAERS Safety Report 8814776 (Version 2)
Quarter: 2012Q4

REPORT INFORMATION
  Report Type: 
  Country: US (occurrence: US)
  Receive Date: 20120928
  Receipt Date: 20121111
  Transmission Date: 20130627
  Serious: Yes (Other)
  Sender: FDA-Public Use
  Company Number: US-TEVA-361071USA

PATIENT
  Sex: Female
  Weight: 52.21 kg

DRUGS (6)
  1. CENESTIN [Suspect]
     Indication: VULVOVAGINAL DRYNESS
     Dosage: .625 Milligram Daily;
     Route: 048
     Dates: start: 2002, end: 2007
  2. ESTROGENS CONJUGATED [Suspect]
     Indication: VULVOVAGINAL DRYNESS
     Dosage: .625 Milligram Daily; 3 days internally, 4 days externally
     Route: 067
     Dates: start: 2007
  3. ESTROGENS CONJUGATED [Suspect]
     Dosage: .5 Milligram Daily;
     Route: 067
     Dates: start: 2007
  4. TAMSULOSIN HYDROCHLORIDE [Concomitant]
     Indication: BLADDER DISORDER
     Dosage: .8 Milligram Daily;
  5. OXYBUTYNIN [Concomitant]
     Indication: BLADDER DISORDER
     Dosage: 5 Milligram Daily;
  6. LEVOTHYROXINE SODIUM [Concomitant]
     Indication: THYROID DISORDER
     Dosage: .75 Milligram Daily;

REACTIONS (4)
  - Thrombosis [Unknown]
  - Hysterectomy [Unknown]
  - Wrong technique in drug usage process [Unknown]
  - Incorrect storage of drug [Unknown]
